FAERS Safety Report 5398822-6 (Version None)
Quarter: 2007Q3

REPORT INFORMATION
  Report Type: 
  Country: None (occurrence: None)
  Receive Date: 20070725
  Receipt Date: 20070725
  Transmission Date: 20080115
  Serious: Yes (Disabling)
  Sender: FDA-Public Use
  Company Number: None

PATIENT
  Sex: Female
  Weight: 56.6996 kg

DRUGS (1)
  1. ACTONEL [Suspect]
     Indication: HEART RATE IRREGULAR
     Dosage: 35 MG 1 WEEK
     Dates: start: 20020101, end: 20070501

REACTIONS (2)
  - CARDIAC VALVE DISEASE [None]
  - HEART RATE IRREGULAR [None]
